FAERS Safety Report 18817397 (Version 2)
Quarter: 2021Q1

REPORT INFORMATION
  Report Type: Spontaneous
  Country: JP (occurrence: JP)
  Receive Date: 20210201
  Receipt Date: 20210219
  Transmission Date: 20210419
  Serious: Yes (Hospitalization, Other)
  Sender: FDA-Public Use
  Company Number: JP-PURDUE-USA-2021-0201840

PATIENT
  Age: 85 Year
  Sex: Female
  Weight: 40 kg

DRUGS (14)
  1. CELECOXIB. [Concomitant]
     Active Substance: CELECOXIB
     Dosage: UNK
     Route: 048
     Dates: start: 20201204, end: 20201210
  2. LIXIANA [Concomitant]
     Active Substance: EDOXABAN TOSYLATE
     Dosage: UNK
     Route: 048
     Dates: start: 20201126, end: 20201210
  3. NORSPAN [Suspect]
     Active Substance: BUPRENORPHINE
     Indication: PRODUCT USED FOR UNKNOWN INDICATION
     Dosage: UNK
     Route: 062
  4. ETIZOLAM [Suspect]
     Active Substance: ETIZOLAM
     Indication: PRODUCT USED FOR UNKNOWN INDICATION
     Dosage: 0.25 MG, UNK
     Route: 048
     Dates: start: 20201210, end: 20201216
  5. PRIMPERAN [Concomitant]
     Active Substance: METOCLOPRAMIDE HYDROCHLORIDE
     Dosage: UNK
     Route: 048
     Dates: start: 20201204, end: 20201210
  6. BISOPROLOL FUMARATE. [Concomitant]
     Active Substance: BISOPROLOL FUMARATE
     Dosage: UNK
     Route: 048
     Dates: start: 20201126, end: 20201210
  7. ENALAPRIL MALEATE. [Concomitant]
     Active Substance: ENALAPRIL MALEATE
     Dosage: UNK
     Route: 048
     Dates: start: 20201126, end: 20201210
  8. MAGNESIUM OXIDE. [Concomitant]
     Active Substance: MAGNESIUM OXIDE
     Dosage: UNK
     Route: 048
     Dates: start: 20201204, end: 20201210
  9. LANSOPRAZOLE. [Concomitant]
     Active Substance: LANSOPRAZOLE
     Dosage: UNK
     Route: 048
     Dates: start: 20201126, end: 20201210
  10. NORSPAN [Suspect]
     Active Substance: BUPRENORPHINE
     Dosage: 5 MCG, Q1H (STRENGTH 5MG)
     Route: 062
     Dates: start: 20201126, end: 20201202
  11. ROSUVASTATIN OD [Concomitant]
     Dosage: UNK
     Route: 048
     Dates: start: 20201126, end: 20201210
  12. NORSPAN [Suspect]
     Active Substance: BUPRENORPHINE
     Indication: SPINAL COMPRESSION FRACTURE
     Dosage: 10 MCG, Q1H
     Route: 062
     Dates: start: 20201203, end: 20201218
  13. AZOSEMIDE [Concomitant]
     Active Substance: AZOSEMIDE
     Dosage: UNK
     Route: 048
     Dates: start: 20201126, end: 20201210
  14. FERRUM                             /00023501/ [Concomitant]
     Dosage: UNK
     Route: 048
     Dates: start: 20201126, end: 20201210

REACTIONS (6)
  - Irritability [Recovering/Resolving]
  - Agitation [Recovering/Resolving]
  - Poriomania [Recovering/Resolving]
  - Delirium [Recovering/Resolving]
  - Aggression [Recovering/Resolving]
  - Restlessness [Recovering/Resolving]

NARRATIVE: CASE EVENT DATE: 20201208
